FAERS Safety Report 7347080-1 (Version None)
Quarter: 2011Q1

REPORT INFORMATION
  Report Type: 
  Country: None (occurrence: None)
  Receive Date: 20110311
  Receipt Date: 20110308
  Transmission Date: 20110831
  Serious: Yes (Death)
  Sender: FDA-Public Use
  Company Number: US-AMGEN-USASP2011013250

PATIENT
  Sex: Female

DRUGS (3)
  1. NPLATE [Suspect]
     Indication: IDIOPATHIC THROMBOCYTOPENIC PURPURA
     Dosage: 1 A?G/KG, UNK
     Dates: start: 20090227, end: 20090313
  2. CORTICOSTEROIDS [Concomitant]
     Dosage: UNK
     Dates: start: 20090215
  3. RITUXIMAB [Concomitant]
     Dosage: UNK
     Dates: start: 20090224

REACTIONS (1)
  - LYMPHOMA [None]
